FAERS Safety Report 8032366-8 (Version None)
Quarter: 2012Q1

REPORT INFORMATION
  Report Type: 
  Country: None (occurrence: None)
  Receive Date: 20120109
  Receipt Date: 20120109
  Transmission Date: 20120608
  Serious: Yes (Hospitalization)
  Sender: FDA-Public Use
  Company Number: None

PATIENT
  Sex: Male
  Weight: 94.3 kg

DRUGS (9)
  1. COMPAZINE [Concomitant]
  2. PRILOSEC [Concomitant]
  3. TAXOL [Suspect]
     Dosage: 93 MG
     Dates: end: 20111223
  4. VICODIN [Concomitant]
  5. CARBOPLATIN [Suspect]
     Dosage: 270 MG
     Dates: end: 20111223
  6. CIPROFLOXACIN [Concomitant]
  7. FLOMAX [Concomitant]
  8. LISINOPRIL [Concomitant]
  9. PHENAZOPYRIDINE HCL TAB [Concomitant]

REACTIONS (2)
  - ASTHENIA [None]
  - DIZZINESS [None]
